FAERS Safety Report 15300978 (Version 1)
Quarter: 2018Q3

REPORT INFORMATION
  Report Type: Spontaneous
  Country: US (occurrence: US)
  Receive Date: 20180809
  Receipt Date: 20180809
  Transmission Date: 20181010
  Serious: Yes (Hospitalization)
  Sender: FDA-Public Use
  Company Number: None

PATIENT
  Sex: Female

DRUGS (9)
  1. METFORMIN [Concomitant]
     Active Substance: METFORMIN HYDROCHLORIDE
  2. HUMALOG [Concomitant]
     Active Substance: INSULIN LISPRO
  3. CIPRO [Concomitant]
     Active Substance: CIPROFLOXACIN HYDROCHLORIDE
  4. LISINOPRIL. [Concomitant]
     Active Substance: LISINOPRIL
  5. MAGNESIUM [Concomitant]
     Active Substance: MAGNESIUM
  6. TOUJEO SOLO [Concomitant]
  7. CALCIUM [Concomitant]
     Active Substance: CALCIUM
  8. NEULASTA [Suspect]
     Active Substance: PEGFILGRASTIM
     Indication: RECTAL CANCER
     Dosage: ?          OTHER FREQUENCY:Q28 DAY CYCLE;?
     Route: 058
     Dates: start: 20180709
  9. ELIQUIS [Concomitant]
     Active Substance: APIXABAN

REACTIONS (1)
  - Intestinal obstruction [None]
